FAERS Safety Report 6667128-7 (Version None)
Quarter: 2010Q2

REPORT INFORMATION
  Report Type: 
  Country: None (occurrence: None)
  Receive Date: 20100401
  Receipt Date: 20100401
  Transmission Date: 20101027
  Serious: Yes (Other)
  Sender: FDA-Public Use
  Company Number: None

PATIENT
  Age: 45 Year
  Sex: Female
  Weight: 75 kg

DRUGS (2)
  1. MOUTH WASH (BIOTENE) [Suspect]
     Indication: DRY MOUTH
     Dosage: BIOTENE MOUTH WASH 1TBLS WHENEVER DESIRED MOUTH
     Route: 048
     Dates: start: 20100316, end: 20100316
  2. DRY MOUTH TOOTHPASTE (BIOTENE) [Suspect]
     Indication: DRY MOUTH
     Dosage: BIOTENE DRY MOUTH TOOTHPASTE AFTER EACH MEAN MOUTH
     Route: 048
     Dates: start: 20100316, end: 20100316

REACTIONS (5)
  - DRY MOUTH [None]
  - DRY THROAT [None]
  - PRODUCT LABEL ISSUE [None]
  - REACTION TO DRUG EXCIPIENTS [None]
  - THROAT TIGHTNESS [None]
